FAERS Safety Report 20159061 (Version 1)
Quarter: 2021Q4

REPORT INFORMATION
  Report Type: Spontaneous
  Country: US (occurrence: US)
  Receive Date: 20211208
  Receipt Date: 20211208
  Transmission Date: 20220304
  Serious: Yes (Hospitalization, Other)
  Sender: FDA-Public Use
  Company Number: US-AMERICAN REGENT INC-2021000076

PATIENT
  Age: 54 Year
  Sex: Male
  Weight: 63 kg

DRUGS (3)
  1. VENOFER [Suspect]
     Active Substance: IRON SUCROSE
     Indication: Iron deficiency anaemia
     Dosage: 200 MILLIGRAM
     Route: 042
     Dates: start: 20200921, end: 20200921
  2. VENOFER [Suspect]
     Active Substance: IRON SUCROSE
     Indication: End stage renal disease
     Dosage: 300 MILLIGRAM
     Route: 042
     Dates: start: 20201029, end: 20201029
  3. VENOFER [Suspect]
     Active Substance: IRON SUCROSE
     Dosage: 300 MILLIGRAM DILUTED IN 250 ML NORMAL SALINE
     Route: 042
     Dates: start: 20201229, end: 20201229

REACTIONS (3)
  - Hypersensitivity [Recovered/Resolved]
  - Diarrhoea [Recovered/Resolved]
  - Abdominal pain upper [Recovered/Resolved]

NARRATIVE: CASE EVENT DATE: 20201029
